FAERS Safety Report 8965445 (Version 1)
Quarter: 2012Q4

REPORT INFORMATION
  Report Type: 
  Country: CZ (occurrence: CZ)
  Receive Date: 20121213
  Receipt Date: 20121213
  Transmission Date: 20130627
  Serious: Yes (Hospitalization, Other)
  Sender: FDA-Public Use
  Company Number: CZ-PFIZER INC-2012310006

PATIENT
  Age: 43 Year
  Sex: Male
  Weight: 83 kg

DRUGS (2)
  1. GENOTROPIN [Suspect]
     Dosage: 0.27 mg, 1x/day, 7 injections/week
     Route: 058
     Dates: start: 20020529
  2. CIPROFIBRATE [Concomitant]
     Indication: HYPERLIPIDAEMIA NOS
     Dosage: UNK
     Dates: start: 20020515

REACTIONS (1)
  - Pituitary tumour benign [Not Recovered/Not Resolved]
